FAERS Safety Report 7304013-1 (Version None)
Quarter: 2011Q1

REPORT INFORMATION
  Report Type: 
  Country: None (occurrence: None)
  Receive Date: 20110221
  Receipt Date: 20110210
  Transmission Date: 20110831
  Serious: Yes (Hospitalization, Disabling)
  Sender: FDA-Public Use
  Company Number: US-MERCK-1102USA01363

PATIENT
  Age: 64 Year
  Sex: Female

DRUGS (4)
  1. ALENDRONATE SODIUM [Suspect]
     Indication: PROPHYLAXIS
     Route: 048
     Dates: start: 20080101, end: 20100201
  2. FOSAMAX [Suspect]
     Indication: PROPHYLAXIS
     Route: 048
     Dates: start: 20030101
  3. ALENDRONATE SODIUM [Suspect]
     Indication: OSTEOPENIA
     Route: 048
     Dates: start: 20080101, end: 20100201
  4. FOSAMAX [Suspect]
     Indication: OSTEOPENIA
     Route: 048
     Dates: start: 20030101

REACTIONS (14)
  - THROMBOSIS [None]
  - FEMUR FRACTURE [None]
  - ATAXIA [None]
  - INCISION SITE PAIN [None]
  - MOBILITY DECREASED [None]
  - TENDONITIS [None]
  - PAIN IN EXTREMITY [None]
  - PATIENT ISOLATION [None]
  - INFLAMMATION [None]
  - DEPRESSED MOOD [None]
  - GAIT DISTURBANCE [None]
  - ASTHENIA [None]
  - FALL [None]
  - ACTIVITIES OF DAILY LIVING IMPAIRED [None]
